FAERS Safety Report 9869880 (Version 1)
Quarter: 2014Q1

REPORT INFORMATION
  Report Type: Spontaneous
  Country: US (occurrence: None)
  Receive Date: 20140203
  Receipt Date: 20140203
  Transmission Date: 20141002
  Serious: Yes (Other)
  Sender: FDA-Public Use
  Company Number: None

PATIENT
  Age: 17 Year
  Sex: Female
  Weight: 45.7 kg

DRUGS (5)
  1. MORPHINE [Suspect]
     Indication: PAIN
     Dosage: 2 MG PRN/AS NEEDED INTRAVENOUS?90 DAYS FROM CPD DATE
     Route: 042
  2. MORPHINE [Suspect]
     Indication: BREAKTHROUGH PAIN
     Dosage: 2 MG PRN/AS NEEDED INTRAVENOUS?90 DAYS FROM CPD DATE
     Route: 042
  3. KETOROLAC [Concomitant]
  4. METRONIDAZOLE [Concomitant]
  5. ONDANSETRON [Concomitant]

REACTIONS (3)
  - Chest discomfort [None]
  - Fear [None]
  - Infusion related reaction [None]
